FAERS Safety Report 16558539 (Version 1)
Quarter: 2019Q3

REPORT INFORMATION
  Report Type: Spontaneous
  Country: IT (occurrence: IT)
  Receive Date: 20190711
  Receipt Date: 20190711
  Transmission Date: 20191004
  Serious: Yes (Other)
  Sender: FDA-Public Use
  Company Number: IT-PFIZER INC-2019293235

PATIENT
  Age: 69 Year
  Sex: Male

DRUGS (4)
  1. TAREG [Concomitant]
     Active Substance: VALSARTAN
     Dosage: UNK
  2. CARDURA [Suspect]
     Active Substance: DOXAZOSIN MESYLATE
     Indication: HYPERTENSION
     Dosage: UNK
     Route: 048
     Dates: start: 20190101, end: 20190224
  3. DICLOREUM [DICLOFENAC] [Suspect]
     Active Substance: DICLOFENAC
     Indication: SCIATIC NERVE NEUROPATHY
     Dosage: 1 DF, TOTAL
     Route: 048
     Dates: start: 20190224, end: 20190224
  4. FOLINA [FOLIC ACID] [Concomitant]
     Active Substance: FOLIC ACID
     Dosage: UNK

REACTIONS (3)
  - Chest pain [Recovering/Resolving]
  - Troponin increased [Recovering/Resolving]
  - Atrial fibrillation [Recovering/Resolving]

NARRATIVE: CASE EVENT DATE: 20190224
